FAERS Safety Report 16850031 (Version 1)
Quarter: 2019Q3

REPORT INFORMATION
  Report Type: Spontaneous
  Country: US (occurrence: US)
  Receive Date: 20190925
  Receipt Date: 20190925
  Transmission Date: 20191005
  Serious: Yes (Hospitalization, Disabling, Other)
  Sender: FDA-Public Use
  Company Number: None

PATIENT
  Age: 50 Year
  Sex: Female
  Weight: 82 kg

DRUGS (3)
  1. SIMVASTATIN (ZOCOR) 20MG [Concomitant]
  2. JARDIANCE [Concomitant]
     Active Substance: EMPAGLIFLOZIN
  3. CALDOLOR [Suspect]
     Active Substance: IBUPROFEN
     Indication: PROCEDURAL PAIN
     Route: 042

REACTIONS (4)
  - Compartment syndrome [None]
  - Burning sensation [None]
  - Localised oedema [None]
  - Cyanosis [None]

NARRATIVE: CASE EVENT DATE: 20190717
